FAERS Safety Report 8948947 (Version 1)
Quarter: 2012Q4

REPORT INFORMATION
  Report Type: 
  Country: US (occurrence: US)
  Receive Date: 20121206
  Receipt Date: 20121206
  Transmission Date: 20130627
  Serious: No
  Sender: FDA-Public Use
  Company Number: US-BAYER-2012-121798

PATIENT
  Age: 44 Year
  Sex: Female

DRUGS (3)
  1. ULTRAVIST [Suspect]
     Indication: ABDOMINAL PAIN
     Dosage: 10 ml, UNK
     Route: 042
     Dates: start: 20121119
  2. ULTRAVIST [Suspect]
     Indication: PELVIC PAIN
  3. ULTRAVIST [Suspect]
     Indication: CT SCAN

REACTIONS (3)
  - Pruritus [Recovered/Resolved]
  - Urticaria [Recovered/Resolved]
  - Erythema [Recovered/Resolved]
